FAERS Safety Report 9701669 (Version 1)
Quarter: 2013Q4

REPORT INFORMATION
  Report Type: Spontaneous
  Country: US (occurrence: US)
  Receive Date: 20131119
  Receipt Date: 20131119
  Transmission Date: 20140711
  Serious: Yes (Other)
  Sender: FDA-Public Use
  Company Number: US-ORACLE-2012S1000017

PATIENT
  Age: 42 Year
  Sex: Male

DRUGS (6)
  1. KRYSTEXXA INJECTION [Suspect]
     Indication: GOUT
     Route: 042
     Dates: start: 20120126, end: 20120126
  2. KRYSTEXXA INJECTION [Suspect]
     Indication: GOUT
     Route: 042
     Dates: start: 20120208, end: 20120208
  3. KRYSTEXXA INJECTION [Suspect]
     Indication: GOUT
     Route: 042
     Dates: start: 20120223, end: 20120223
  4. BENADRYL /00945501/ [Concomitant]
     Indication: PREMEDICATION
     Dates: start: 20120126, end: 20120223
  5. SOLUMEDROL [Concomitant]
     Indication: PREMEDICATION
     Dates: start: 20120126, end: 20120223
  6. COLCHICINE [Concomitant]
     Indication: PRODUCT USED FOR UNKNOWN INDICATION

REACTIONS (1)
  - Infusion related reaction [Recovered/Resolved]
